FAERS Safety Report 7235261-7 (Version None)
Quarter: 2011Q1

REPORT INFORMATION
  Report Type: 
  Country: None (occurrence: None)
  Receive Date: 20110120
  Receipt Date: 20110112
  Transmission Date: 20110831
  Serious: Yes (Hospitalization)
  Sender: FDA-Public Use
  Company Number: DE-JNJFOC-20110103562

PATIENT
  Age: 79 Year
  Sex: Female

DRUGS (11)
  1. HYDROMORPHONE [Suspect]
     Indication: ANALGESIC THERAPY
     Route: 048
  2. MORPHINE [Suspect]
     Dosage: 80MG IN 80 MIN
     Route: 048
  3. METAMIZOL [Suspect]
     Indication: ANALGESIC THERAPY
     Route: 042
  4. FENTANYL [Suspect]
     Route: 062
  5. HYDROMORPHONE [Suspect]
     Dosage: LOCK OUT IN 10 MIN
     Route: 040
  6. LORAZEPAM [Concomitant]
  7. FENTANYL [Suspect]
     Indication: ANALGESIC THERAPY
     Route: 062
  8. DULOXETINE [Suspect]
     Indication: ANALGESIC THERAPY
     Route: 048
  9. HALOPERIDOL [Concomitant]
     Dosage: UPTO 5MG
  10. FENTANYL [Suspect]
     Route: 062
  11. MORPHINE [Suspect]
     Indication: ANALGESIC THERAPY
     Dosage: 80MG IN 80 MIN
     Route: 042

REACTIONS (1)
  - PAIN [None]
